FAERS Safety Report 9195876 (Version 2)
Quarter: 2013Q4

REPORT INFORMATION
  Report Type: Spontaneous
  Country: US (occurrence: US)
  Receive Date: 20130328
  Receipt Date: 20131025
  Transmission Date: 20140711
  Serious: Yes (Hospitalization)
  Sender: FDA-Public Use
  Company Number: US-BAYER-2013-037971

PATIENT
  Age: 29 Year
  Sex: Female
  Weight: 86.17 kg

DRUGS (9)
  1. MIRENA [Suspect]
     Indication: CONTRACEPTION
     Dosage: 20 MCG/24HR, CONT
     Route: 015
     Dates: start: 20110511, end: 20120309
  2. IBUPROFEN [Concomitant]
  3. ATIVAN [Concomitant]
  4. NORCO [Concomitant]
  5. MOTRIN [Concomitant]
  6. COLACE [Concomitant]
  7. FERROUS SULFATE [Concomitant]
  8. ZOFRAN [Concomitant]
     Indication: VOMITING
  9. ZOFRAN [Concomitant]
     Indication: DIARRHOEA

REACTIONS (6)
  - Uterine perforation [None]
  - Injury [None]
  - Emotional distress [None]
  - Pain [None]
  - Anxiety [None]
  - Menorrhagia [Recovered/Resolved]
